FAERS Safety Report 12096398 (Version 2)
Quarter: 2016Q2

REPORT INFORMATION
  Report Type: Spontaneous
  Country: US (occurrence: US)
  Receive Date: 20160220
  Receipt Date: 20160412
  Transmission Date: 20160815
  Serious: No
  Sender: FDA-Public Use
  Company Number: US-AUROBINDO-AUR-APL-2015-05140

PATIENT
  Sex: Male
  Weight: 69 kg

DRUGS (11)
  1. FINASTERIDE. [Suspect]
     Active Substance: FINASTERIDE
     Indication: PRODUCT USED FOR UNKNOWN INDICATION
     Dosage: UNK
     Route: 065
  2. SIMVASTATIN. [Suspect]
     Active Substance: SIMVASTATIN
     Indication: PRODUCT USED FOR UNKNOWN INDICATION
     Dosage: 20 MG, EVERY MORNING
     Route: 065
  3. OMEPRAZOLE. [Suspect]
     Active Substance: OMEPRAZOLE
     Indication: PRODUCT USED FOR UNKNOWN INDICATION
     Dosage: 20 MG, TWO TIMES A DAY
     Route: 065
  4. TYLENOL ARTHRITIS PAIN [Suspect]
     Active Substance: ACETAMINOPHEN
     Indication: PRODUCT USED FOR UNKNOWN INDICATION
     Route: 065
  5. TRAMADOL TABLET [Suspect]
     Active Substance: TRAMADOL
     Indication: PRODUCT USED FOR UNKNOWN INDICATION
     Dosage: 50 MG, ONE TABLET 4-6 HOURS AS NEEDED.
     Route: 065
  6. GEMFIBROZIL. [Suspect]
     Active Substance: GEMFIBROZIL
     Indication: PRODUCT USED FOR UNKNOWN INDICATION
     Dosage: 600 MG, TWO TIMES A DAY
     Route: 065
  7. SINGULAIR [Suspect]
     Active Substance: MONTELUKAST SODIUM
     Indication: PRODUCT USED FOR UNKNOWN INDICATION
     Dosage: 10 MG, ONCE A DAY AT NIGHT
     Route: 065
  8. BENTYL [Suspect]
     Active Substance: DICYCLOMINE HYDROCHLORIDE
     Indication: PRODUCT USED FOR UNKNOWN INDICATION
     Dosage: 10 MG, ONCE A DAY
     Route: 065
  9. NITROSTAT [Suspect]
     Active Substance: NITROGLYCERIN
     Indication: ANGINA PECTORIS
     Route: 065
  10. METFORMIN TABLET [Suspect]
     Active Substance: METFORMIN HYDROCHLORIDE
     Indication: PRODUCT USED FOR UNKNOWN INDICATION
     Dosage: 1000 MG, TWO TIMES A DAY, ONE HALF TABLET IN MID DAY
     Route: 065
  11. ASPIRIN. [Suspect]
     Active Substance: ASPIRIN
     Indication: PRODUCT USED FOR UNKNOWN INDICATION
     Dosage: 1 UNK, ONCE A DAY
     Route: 065

REACTIONS (3)
  - Surgery [Unknown]
  - Medication error [Unknown]
  - Memory impairment [Unknown]
